FAERS Safety Report 4651062-8 (Version None)
Quarter: 2005Q2

REPORT INFORMATION
  Report Type: 
  Country: None (occurrence: None)
  Receive Date: 20050503
  Receipt Date: 20041026
  Transmission Date: 20051028
  Serious: Yes (Death, Hospitalization)
  Sender: FDA-Public Use
  Company Number: FR-ROCHE-384142

PATIENT
  Age: 75 Year
  Sex: Female

DRUGS (2)
  1. CAPECITABINE [Suspect]
     Dosage: GIVEN FOR 2 WEEKS OF A 3 WEEK CYCLE
     Route: 048
     Dates: start: 20041005, end: 20041015
  2. OXALIPLATIN [Suspect]
     Route: 042
     Dates: start: 20041005, end: 20041015

REACTIONS (2)
  - DIARRHOEA [None]
  - PERFORMANCE STATUS DECREASED [None]
